FAERS Safety Report 10241300 (Version 2)
Quarter: 2014Q3

REPORT INFORMATION
  Report Type: Spontaneous
  Country: US (occurrence: US)
  Receive Date: 20140617
  Receipt Date: 20140731
  Transmission Date: 20150326
  Serious: Yes (Other)
  Sender: FDA-Public Use
  Company Number: CHPA2014US008162

PATIENT
  Age: 68 Year
  Sex: Female

DRUGS (3)
  1. VOLTAREN [Suspect]
     Active Substance: DICLOFENAC SODIUM
     Indication: OFF LABEL USE
  2. VOLTAREN [Suspect]
     Active Substance: DICLOFENAC SODIUM
     Indication: FEELING HOT
     Dosage: 2 G, BID
     Route: 061
     Dates: start: 201406
  3. VOLTAREN [Suspect]
     Active Substance: DICLOFENAC SODIUM
     Indication: INCORRECT DOSE ADMINISTERED

REACTIONS (2)
  - Haematochezia [Not Recovered/Not Resolved]
  - Abdominal pain upper [Not Recovered/Not Resolved]

NARRATIVE: CASE EVENT DATE: 201406
